FAERS Safety Report 5604048-0 (Version None)
Quarter: 2008Q1

REPORT INFORMATION
  Report Type: 
  Country: None (occurrence: None)
  Receive Date: 20080128
  Receipt Date: 20080118
  Transmission Date: 20080703
  Serious: Yes (Hospitalization, Other)
  Sender: FDA-Public Use
  Company Number: PHBS2007JP20377

PATIENT
  Age: 13 Year
  Sex: Female
  Weight: 41 kg

DRUGS (6)
  1. VOLTAREN [Suspect]
     Indication: ANTIPYRESIS
     Dosage: 25 MG/DAY
     Route: 054
     Dates: start: 20070830, end: 20070830
  2. FLOMOX [Concomitant]
     Indication: CELLULITIS
     Dosage: 300 MG, UNK
     Route: 048
     Dates: start: 20070908, end: 20070913
  3. CALONAL [Suspect]
     Indication: ANTIPYRESIS
     Dosage: 300 MG/DAY
     Route: 048
     Dates: start: 20070831, end: 20070901
  4. CEFAMEZOL [Suspect]
     Indication: CELLULITIS
     Dosage: 4.5 MG/DAY
     Dates: start: 20070831, end: 20070902
  5. CEFAMEZOL [Suspect]
     Dosage: 3 G/DAY
     Dates: start: 20070903, end: 20070908
  6. BIOFERMIN [Concomitant]
     Dosage: 3 DF, UNK
     Route: 048
     Dates: start: 20070908, end: 20070913

REACTIONS (8)
  - ABSCESS DRAINAGE [None]
  - ACUTE GENERALISED EXANTHEMATOUS PUSTULOSIS [None]
  - BIOPSY SKIN ABNORMAL [None]
  - BLOOD ALKALINE PHOSPHATASE INCREASED [None]
  - ERYTHEMA [None]
  - PYREXIA [None]
  - RASH [None]
  - RASH PUSTULAR [None]
